FAERS Safety Report 9690259 (Version 1)
Quarter: 2013Q4

REPORT INFORMATION
  Report Type: Spontaneous
  Country: US (occurrence: None)
  Receive Date: 20131114
  Receipt Date: 20131114
  Transmission Date: 20140711
  Serious: Yes (Other)
  Sender: FDA-Public Use
  Company Number: None

PATIENT
  Age: 8 Year
  Sex: Male
  Weight: 45.36 kg

DRUGS (1)
  1. CLONIDINE HCL [Suspect]
     Indication: ATTENTION DEFICIT/HYPERACTIVITY DISORDER
     Route: 048
     Dates: start: 20131103, end: 20131111

REACTIONS (7)
  - Product substitution issue [None]
  - Lethargy [None]
  - Mania [None]
  - Product quality issue [None]
  - Tearfulness [None]
  - Agitation [None]
  - Hallucination, visual [None]
